FAERS Safety Report 5082623-2 (Version None)
Quarter: 2006Q3

REPORT INFORMATION
  Report Type: 
  Country: None (occurrence: None)
  Receive Date: 20060814
  Receipt Date: 20060809
  Transmission Date: 20061208
  Serious: Yes (Disabling, Other)
  Sender: FDA-Public Use
  Company Number: USA-2006-0024677

PATIENT
  Age: 12 Year
  Sex: Female

DRUGS (3)
  1. CEFDITOREN PIVOXIL (SIMILAR TO NDA 21-222) (CEFITOREN PIVOXIL) UNKNOWN [Suspect]
     Indication: OTITIS EXTERNA
     Dosage: 100 MG, DAILY, ORAL
     Route: 048
     Dates: start: 20060715, end: 20060715
  2. SURGAM (TIAPROFENIC ACID) [Concomitant]
  3. BIOFERMIN R (STREPTOCOCCUS FAECALIS) [Concomitant]

REACTIONS (5)
  - DYSPNOEA [None]
  - HEADACHE [None]
  - NAUSEA [None]
  - PHARYNGEAL OEDEMA [None]
  - SHOCK [None]
